FAERS Safety Report 24852784 (Version 9)
Quarter: 2025Q2

REPORT INFORMATION
  Report Type: Spontaneous
  Country: US (occurrence: US)
  Receive Date: 20250116
  Receipt Date: 20250612
  Transmission Date: 20250717
  Serious: No
  Sender: DAIICHI
  Company Number: US-DAIICHI SANKYO, INC.-DS-2025-119789-USAA

PATIENT
  Age: 55 Year
  Sex: Female

DRUGS (3)
  1. TURALIO [Suspect]
     Active Substance: PEXIDARTINIB HYDROCHLORIDE
     Indication: Giant cell tumour of tendon sheath
     Dosage: 250 MG, BID
     Route: 048
     Dates: start: 202412
  2. TURALIO [Suspect]
     Active Substance: PEXIDARTINIB HYDROCHLORIDE
     Dosage: 125 MG, BID (1 CAPSULE BY  MOUTH EVERY  AM AND 2 CAPSULES  EVERY PM.)
     Route: 048
     Dates: start: 20241231
  3. ESTRADIOL [Suspect]
     Active Substance: ESTRADIOL
     Indication: Vulvovaginal pruritus
     Dosage: 1 G, BID (FOR 14 DAYS)
     Route: 065

REACTIONS (23)
  - Pain [Recovered/Resolved]
  - Vulvovaginal pruritus [Recovered/Resolved]
  - Back pain [Recovered/Resolved]
  - Flank pain [Recovered/Resolved]
  - Headache [Recovered/Resolved]
  - Drug interaction [Recovered/Resolved]
  - Influenza [Recovered/Resolved]
  - Nasopharyngitis [Recovered/Resolved]
  - Oropharyngeal pain [Recovered/Resolved]
  - Nasal congestion [Recovered/Resolved]
  - Cough [Recovered/Resolved]
  - Asthenia [Recovered/Resolved]
  - Pruritus [Recovered/Resolved]
  - Constipation [Recovered/Resolved]
  - Back pain [Unknown]
  - Pain in extremity [Unknown]
  - Pain in extremity [Not Recovered/Not Resolved]
  - Headache [Not Recovered/Not Resolved]
  - Product use issue [Unknown]
  - Joint swelling [Not Recovered/Not Resolved]
  - Constipation [Not Recovered/Not Resolved]
  - Pain [Not Recovered/Not Resolved]
  - Pruritus [Not Recovered/Not Resolved]

NARRATIVE: CASE EVENT DATE: 20250401
